FAERS Safety Report 9727057 (Version 2)
Quarter: 2014Q2

REPORT INFORMATION
  Report Type: Spontaneous
  Country: US (occurrence: US)
  Receive Date: 20131203
  Receipt Date: 20140527
  Transmission Date: 20141212
  Serious: Yes (Hospitalization)
  Sender: FDA-Public Use
  Company Number: US-BAYER-2013-143776

PATIENT
  Age: 42 Year
  Sex: Female
  Weight: 65.76 kg

DRUGS (7)
  1. YAZ [Suspect]
     Indication: CONTRACEPTION
     Dosage: UNK
     Dates: start: 20080415, end: 20080514
  2. YAZ [Suspect]
     Indication: PREMENSTRUAL SYNDROME
  3. HYDROCHLOROTHIAZIDE [Concomitant]
     Indication: SWELLING
     Dosage: 50 MG, TAKE 1 TO 2 TABLETS EVERY MORNING
     Dates: start: 2007, end: 2008
  4. HYDROCHLOROTHIAZIDE [Concomitant]
     Indication: FLUID RETENTION
  5. KLONOPIN [Concomitant]
     Indication: ANXIETY
     Dosage: UNK
     Dates: start: 2007, end: 2009
  6. NEXIUM [Concomitant]
     Indication: GASTROOESOPHAGEAL REFLUX DISEASE
     Dosage: UNK
     Dates: start: 2007, end: 2009
  7. LEXAPRO [Concomitant]

REACTIONS (10)
  - Cerebrovascular accident [None]
  - Lacunar infarction [None]
  - Muscular weakness [None]
  - Mental disorder [None]
  - Injury [None]
  - Pain [None]
  - General physical health deterioration [None]
  - Emotional distress [None]
  - Anxiety [None]
  - Pain [None]
